FAERS Safety Report 8760329 (Version 2)
Quarter: 2012Q4

REPORT INFORMATION
  Report Type: Spontaneous
  Country: JP (occurrence: None)
  Receive Date: 20120820
  Receipt Date: 20120906
  Transmission Date: 20130627
  Serious: Yes (Other)
  Sender: FDA-Public Use
  Company Number: JP-2012-10302

PATIENT
  Age: 65 Year
  Sex: Male
  Weight: 66 kg

DRUGS (12)
  1. SAMSCA (TOLVAPTAN) TABLET [Suspect]
     Indication: CARDIAC FAILURE CONGESTIVE
     Route: 048
     Dates: start: 20110210, end: 20110210
  2. SAMSCA (TOLVAPTAN) TABLET [Suspect]
     Indication: CARDIAC FAILURE CONGESTIVE
     Route: 048
     Dates: start: 20110211, end: 20110211
  3. SAMSCA (TOLVAPTAN) TABLET [Suspect]
     Indication: CARDIAC FAILURE CONGESTIVE
     Route: 048
     Dates: start: 20110212, end: 20110213
  4. SAMSCA (TOLVAPTAN) TABLET [Suspect]
     Indication: CARDIAC FAILURE CONGESTIVE
     Route: 048
     Dates: start: 20110215
  5. LASIX (FUROSEMIDE) [Concomitant]
  6. ZYLORIC (ALLOPURINOL) [Concomitant]
  7. WARFARIN (WARFARIN SODIUM) [Concomitant]
  8. PARIET (RABEPRAZOLE SODIUM) [Concomitant]
  9. ARTIST (CARVEDILOL) [Concomitant]
  10. DIART (AZOSEMIDE) [Concomitant]
  11. SELARA (EPLERENONE) [Concomitant]
  12. MYSLEE (ZOLPIDEM TARTRATE) [Concomitant]

REACTIONS (8)
  - Restlessness [None]
  - Abnormal behaviour [None]
  - Ventricular tachycardia [None]
  - Disorientation [None]
  - Overdose [None]
  - Blood potassium decreased [None]
  - Blood glucose increased [None]
  - Stress [None]
